FAERS Safety Report 12927399 (Version 1)
Quarter: 2016Q4

REPORT INFORMATION
  Report Type: Spontaneous
  Country: US (occurrence: US)
  Receive Date: 20161109
  Receipt Date: 20161109
  Transmission Date: 20170207
  Serious: No
  Sender: FDA-Public Use
  Company Number: US-ALLERGAN-1611782US

PATIENT
  Age: 77 Year
  Sex: Female

DRUGS (2)
  1. ALPHAGAN P [Suspect]
     Active Substance: BRIMONIDINE TARTRATE
     Dosage: 2 GTT, UNK
     Dates: start: 20160130, end: 20160203
  2. ALPHAGAN P [Suspect]
     Active Substance: BRIMONIDINE TARTRATE
     Indication: HALO VISION
     Dosage: 2 GTT, BID
     Route: 047
     Dates: start: 20160130, end: 20160203

REACTIONS (9)
  - Conjunctivitis [Not Recovered/Not Resolved]
  - Foreign body sensation in eyes [Recovered/Resolved]
  - Vision blurred [Not Recovered/Not Resolved]
  - Eye pain [Not Recovered/Not Resolved]
  - Off label use [Unknown]
  - Eye inflammation [Not Recovered/Not Resolved]
  - Eye discharge [Not Recovered/Not Resolved]
  - Product quality issue [Unknown]
  - Ocular hyperaemia [Recovered/Resolved]

NARRATIVE: CASE EVENT DATE: 20160130
